FAERS Safety Report 14644121 (Version 1)
Quarter: 2018Q1

REPORT INFORMATION
  Report Type: Spontaneous
  Country: FR (occurrence: TW)
  Receive Date: 20180315
  Receipt Date: 20180315
  Transmission Date: 20180509
  Serious: Yes (Death, Hospitalization, Other)
  Sender: FDA-Public Use
  Company Number: FR-PFIZER INC-2018106551

PATIENT
  Age: 30 Year
  Sex: Male
  Weight: 68.5 kg

DRUGS (2)
  1. OPDIVO [Suspect]
     Active Substance: NIVOLUMAB
     Indication: LARYNGEAL CANCER
     Dosage: 3 MG/KG, Q2WK
     Route: 042
     Dates: start: 20170804, end: 20170922
  2. GEMCITABINE HYDROCHLORIDE. [Suspect]
     Active Substance: GEMCITABINE HYDROCHLORIDE
     Indication: LARYNGEAL CANCER
     Dosage: UNK, CYCLIC
     Route: 065

REACTIONS (10)
  - Wound infection [Unknown]
  - Neoplasm progression [Unknown]
  - Death [Fatal]
  - Seizure [Unknown]
  - Nodule [Unknown]
  - Haematuria [Unknown]
  - Pancytopenia [Recovered/Resolved]
  - Pleural effusion [Unknown]
  - Scrotal swelling [Unknown]
  - Status epilepticus [Unknown]

NARRATIVE: CASE EVENT DATE: 20171001
